FAERS Safety Report 4510430-5 (Version None)
Quarter: 2004Q4

REPORT INFORMATION
  Report Type: 
  Country: None (occurrence: None)
  Receive Date: 20041122
  Receipt Date: 20041116
  Transmission Date: 20050328
  Serious: Yes (Other)
  Sender: FDA-Public Use
  Company Number: 2004S1000249

PATIENT
  Age: 72 Year
  Sex: Male
  Weight: 77 kg

DRUGS (17)
  1. CUBICIN [Suspect]
     Indication: GROIN INFECTION
     Dosage: 460 MG; Q24H;  IV
     Dates: start: 20041019, end: 20041107
  2. CUBICIN [Suspect]
     Indication: STAPHYLOCOCCAL INFECTION
     Dosage: 460 MG; Q24H;  IV
     Dates: start: 20041019, end: 20041107
  3. FLUCONAZOLE [Concomitant]
  4. ATENOLOL [Concomitant]
  5. IMDUR [Concomitant]
  6. HEPARIN [Concomitant]
  7. PROTONIX [Concomitant]
  8. REMERON [Concomitant]
  9. RIFAMPICIN [Concomitant]
  10. COLACE [Concomitant]
  11. MIRALAX [Concomitant]
  12. HYDROCORTISONE [Concomitant]
  13. NYSTATIN [Concomitant]
  14. ACETAMINOPHEN [Concomitant]
  15. HEPARIN [Concomitant]
  16. MORPHINE [Concomitant]
  17. OXYCODONE HCL [Concomitant]

REACTIONS (12)
  - ARRHYTHMIA [None]
  - ATRIOVENTRICULAR BLOCK FIRST DEGREE [None]
  - ATRIOVENTRICULAR BLOCK SECOND DEGREE [None]
  - BLOOD CHLORIDE DECREASED [None]
  - BLOOD SODIUM DECREASED [None]
  - BRADYCARDIA [None]
  - BUNDLE BRANCH BLOCK RIGHT [None]
  - HAEMATOCRIT DECREASED [None]
  - HAEMOGLOBIN DECREASED [None]
  - PELVIC ABSCESS [None]
  - PYREXIA [None]
  - VENTRICULAR TACHYCARDIA [None]
